FAERS Safety Report 9730587 (Version 1)
Quarter: 2013Q4

REPORT INFORMATION
  Report Type: Spontaneous
  Country: US (occurrence: US)
  Receive Date: 20131202
  Receipt Date: 20131202
  Transmission Date: 20140711
  Serious: No
  Sender: FDA-Public Use
  Company Number: US-AMGEN-USASP2013080104

PATIENT
  Age: 67 Year
  Sex: Female

DRUGS (2)
  1. ENBREL [Suspect]
     Indication: RHEUMATOID ARTHRITIS
     Dosage: 25 MG, 2 TIMES/WK
     Route: 065
     Dates: start: 20040801
  2. ENBREL [Suspect]

REACTIONS (4)
  - Visual impairment [Not Recovered/Not Resolved]
  - Eye inflammation [Not Recovered/Not Resolved]
  - Cataract [Recovered/Resolved]
  - Eye disorder [Recovered/Resolved]
